FAERS Safety Report 24921946 (Version 1)
Quarter: 2025Q1

REPORT INFORMATION
  Report Type: Report from Study
  Country: TR (occurrence: TR)
  Receive Date: 20250204
  Receipt Date: 20250204
  Transmission Date: 20250408
  Serious: Yes (Other)
  Sender: RANBAXY
  Company Number: TR-SUN PHARMACEUTICAL INDUSTRIES LTD-2025R1-492208

PATIENT
  Age: 10 Year
  Sex: Male

DRUGS (2)
  1. CIPROFLOXACIN [Suspect]
     Active Substance: CIPROFLOXACIN
     Indication: Acute lymphocytic leukaemia
     Route: 065
  2. CIDOFOVIR [Suspect]
     Active Substance: CIDOFOVIR
     Indication: Acute lymphocytic leukaemia
     Route: 065

REACTIONS (1)
  - Cystitis haemorrhagic [Unknown]
